FAERS Safety Report 7478600-4 (Version None)
Quarter: 2011Q2

REPORT INFORMATION
  Report Type: 
  Country: None (occurrence: None)
  Receive Date: 20110506
  Receipt Date: 20110421
  Transmission Date: 20111010
  Serious: Yes (Death)
  Sender: FDA-Public Use
  Company Number: JPI-P-014792

PATIENT
  Age: 80 Year
  Sex: Female

DRUGS (2)
  1. XYREM [Suspect]
     Indication: CATAPLEXY
     Dosage: 2 GM (1 GM, 2 IN 1 D), ORAL (TITRATING DOSE), ORAL 5 GM (2.5 GM, 2 IN 1 D), ORAL
     Route: 048
     Dates: start: 20040907
  2. XYREM [Suspect]
     Indication: CATAPLEXY
     Dosage: 2 GM (1 GM, 2 IN 1 D), ORAL (TITRATING DOSE), ORAL 5 GM (2.5 GM, 2 IN 1 D), ORAL
     Route: 048
     Dates: start: 20050603, end: 20051005

REACTIONS (1)
  - DEATH [None]
